FAERS Safety Report 8833360 (Version 1)
Quarter: 2012Q4

REPORT INFORMATION
  Report Type: Report from Study
  Country: DE (occurrence: DE)
  Receive Date: 20121010
  Receipt Date: 20121010
  Transmission Date: 20130627
  Serious: Yes (Other)
  Sender: FDA-Public Use
  Company Number: DE-B.I. PHARMACEUTICALS,INC./RIDGEFIELD-2012-DE-02362DE

PATIENT
  Age: 2 Year
  Sex: Male
  Weight: 18 kg

DRUGS (3)
  1. SPIRIVA 18 MIKROGRAMM KAPSEL MIT INHALATIONSPULVER [Suspect]
     Dosage: 1 anz
     Route: 048
     Dates: start: 20121003
  2. LYRICA 150 MG HARTKAPSELN [Suspect]
     Dosage: strength of 1 capsule: 150 mg
     Route: 048
     Dates: start: 20121003
  3. VENLAFAXIN [Suspect]
     Route: 048
     Dates: start: 20121003

REACTIONS (2)
  - Accidental exposure to product by child [Unknown]
  - Product blister packaging issue [None]
